FAERS Safety Report 13240415 (Version 1)
Quarter: 2017Q1

REPORT INFORMATION
  Report Type: Spontaneous
  Country: US (occurrence: US)
  Receive Date: 20170216
  Receipt Date: 20170216
  Transmission Date: 20170428
  Serious: No
  Sender: FDA-Public Use
  Company Number: US-RELYPSA-RLY2016003844

PATIENT
  Age: 76 Year
  Sex: Female

DRUGS (21)
  1. GABAPENTIN. [Concomitant]
     Active Substance: GABAPENTIN
     Indication: NEUROPATHY PERIPHERAL
     Dosage: 600 MG, QD
  2. MULTIVITAMIN                       /00097801/ [Concomitant]
     Active Substance: VITAMINS
  3. CALCIUM [Concomitant]
     Active Substance: CALCIUM
  4. MELATONIN [Concomitant]
     Active Substance: MELATONIN
  5. VELTASSA [Suspect]
     Active Substance: PATIROMER
     Indication: CHRONIC KIDNEY DISEASE
  6. NOVOLIN N [Concomitant]
     Active Substance: INSULIN HUMAN
  7. LEVOTHYROXINE. [Concomitant]
     Active Substance: LEVOTHYROXINE
     Indication: THYROID DISORDER
     Dosage: 50 MCG, UNK
  8. VITAMIN D3 [Concomitant]
     Active Substance: CHOLECALCIFEROL
  9. METOPROLOL TARTRATE. [Concomitant]
     Active Substance: METOPROLOL TARTRATE
  10. VELTASSA [Suspect]
     Active Substance: PATIROMER
     Indication: HYPERKALAEMIA
     Dosage: 8.4 G, QD
     Route: 048
     Dates: start: 20161020, end: 20161126
  11. REQUIP [Concomitant]
     Active Substance: ROPINIROLE HYDROCHLORIDE
     Indication: RESTLESS LEGS SYNDROME
     Dosage: 2 MG, UNK
  12. VITAMIN B12 [Concomitant]
     Active Substance: CYANOCOBALAMIN
  13. COENZYME Q10 [Concomitant]
     Active Substance: UBIDECARENONE
  14. SIMVASTATIN. [Concomitant]
     Active Substance: SIMVASTATIN
     Dosage: 20 MG, UNK
  15. HYDROXYUREA. [Concomitant]
     Active Substance: HYDROXYUREA
     Indication: PLATELET COUNT INCREASED
  16. HYLAND^S LEG CRAMPS [Concomitant]
     Active Substance: HOMEOPATHICS
  17. BACLOFEN. [Concomitant]
     Active Substance: BACLOFEN
     Indication: MUSCLE SPASMS
     Dosage: 10 MG, UNK
  18. ARANESP [Concomitant]
     Active Substance: DARBEPOETIN ALFA
     Indication: ANAEMIA
  19. NOVOLIN R [Concomitant]
     Active Substance: INSULIN HUMAN
  20. AMITRIPTYLINE [Concomitant]
     Active Substance: AMITRIPTYLINE
     Indication: NEUROPATHY PERIPHERAL
     Dosage: 25 MG, QD
  21. MAGNESIUM [Concomitant]
     Active Substance: MAGNESIUM

REACTIONS (5)
  - Myalgia [Unknown]
  - Dyspnoea exertional [Recovering/Resolving]
  - Therapeutic response unexpected [Recovered/Resolved]
  - Insomnia [Unknown]
  - Muscle spasms [Recovered/Resolved]

NARRATIVE: CASE EVENT DATE: 2016
